FAERS Safety Report 24254672 (Version 1)
Quarter: 2024Q3

REPORT INFORMATION
  Report Type: Spontaneous
  Country: ZA (occurrence: None)
  Receive Date: 20240827
  Receipt Date: 20240827
  Transmission Date: 20241017
  Serious: Yes (Hospitalization)
  Sender: ASTRAZENECA
  Company Number: 2024A189582

PATIENT
  Age: 75 Year
  Sex: Male

DRUGS (8)
  1. BUDESONIDE\FORMOTEROL [Suspect]
     Active Substance: BUDESONIDE\FORMOTEROL
     Indication: Asthma
     Dosage: 4.0MG UNKNOWN
     Route: 055
  2. VERMOX [Concomitant]
     Active Substance: MEBENDAZOLE
     Dosage: 100.0MG UNKNOWN
     Route: 048
  3. BENYLIN FOUR FLU [Concomitant]
     Route: 048
  4. AMOXICILLIN\CLAVULANIC ACID [Concomitant]
     Active Substance: AMOXICILLIN\CLAVULANIC ACID
     Dosage: 1000.0MG UNKNOWN
     Route: 048
  5. ATIVAN [Concomitant]
     Active Substance: LORAZEPAM
     Indication: Anxiety
     Dosage: 1.0MG UNKNOWN
     Route: 048
  6. COLCHICINE [Concomitant]
     Active Substance: COLCHICINE
     Route: 048
  7. URISPAS [Concomitant]
     Active Substance: FLAVOXATE HYDROCHLORIDE
     Indication: Hypertonic bladder
     Dosage: 200.0MG UNKNOWN
     Route: 048
  8. BUTYLSCOPOLAMINE BROMIDE [Concomitant]
     Active Substance: BUTYLSCOPOLAMINE BROMIDE
     Dosage: 10.0MG UNKNOWN
     Route: 048

REACTIONS (1)
  - Nephrolithiasis [Unknown]
